FAERS Safety Report 5171516-8 (Version None)
Quarter: 2006Q4

REPORT INFORMATION
  Report Type: 
  Country: None (occurrence: None)
  Receive Date: 20061213
  Receipt Date: 20060721
  Transmission Date: 20070319
  Serious: Yes (Life-Threatening, Other)
  Sender: FDA-Public Use
  Company Number: US-AMGEN-US187110

PATIENT
  Sex: Female

DRUGS (18)
  1. ENBREL [Suspect]
     Indication: RHEUMATOID ARTHRITIS
     Route: 058
     Dates: start: 20040101
  2. METHOTREXATE [Concomitant]
     Dates: start: 20040101
  3. NEURONTIN [Concomitant]
  4. VICODIN [Concomitant]
  5. DETROL [Concomitant]
  6. PLAVIX [Concomitant]
  7. FOLTX [Concomitant]
  8. PREMARIN [Concomitant]
  9. PROTONIX [Concomitant]
  10. METOPROLOL SUCCINATE [Concomitant]
  11. MOBIC [Concomitant]
  12. LIPITOR [Concomitant]
  13. OXYCONTIN [Concomitant]
  14. PEPCID [Concomitant]
  15. DECADRON [Concomitant]
  16. ALLOPURINOL [Concomitant]
  17. RELAFEN [Concomitant]
  18. SKELAXIN [Concomitant]

REACTIONS (17)
  - ADRENAL MASS [None]
  - ARTHRALGIA [None]
  - BACK PAIN [None]
  - CONDITION AGGRAVATED [None]
  - CONSTIPATION [None]
  - DIARRHOEA [None]
  - DYSAESTHESIA [None]
  - HYPERAESTHESIA [None]
  - HYPOAESTHESIA [None]
  - IMPAIRED HEALING [None]
  - LUNG CANCER METASTATIC [None]
  - MEAN CELL VOLUME INCREASED [None]
  - MUSCULOSKELETAL STIFFNESS [None]
  - PAIN [None]
  - PARAESTHESIA [None]
  - RED CELL DISTRIBUTION WIDTH INCREASED [None]
  - RHEUMATOID ARTHRITIS [None]
